FAERS Safety Report 7803046-6 (Version None)
Quarter: 2011Q4

REPORT INFORMATION
  Report Type: 
  Country: None (occurrence: None)
  Receive Date: 20111007
  Receipt Date: 20111004
  Transmission Date: 20120403
  Serious: Yes (Other)
  Sender: FDA-Public Use
  Company Number: SE-AMGEN-SWESP2011042826

PATIENT
  Age: 57 Year
  Sex: Female

DRUGS (7)
  1. CALCIUM CARBONATE [Concomitant]
  2. VITAMIN D [Concomitant]
  3. OMEPRAZOLE [Concomitant]
  4. PROLIA [Suspect]
     Indication: OSTEOPOROSIS
     Dosage: 60 MG, UNK
     Dates: start: 20110707
  5. CORTISONE ACETATE [Concomitant]
     Indication: POLYMYALGIA RHEUMATICA
  6. PREDNISOLONE [Concomitant]
     Dosage: 5 MG, UNK
  7. CALCIUM CARBONATE [Concomitant]

REACTIONS (5)
  - PELVIC PAIN [None]
  - ARTHRALGIA [None]
  - CONNECTIVE TISSUE DISORDER [None]
  - MYALGIA [None]
  - PAIN [None]
